FAERS Safety Report 5786303 (Version 5)
Quarter: 2025Q2

REPORT INFORMATION
  Report Type: Spontaneous
  Country: US (occurrence: US)
  Receive Date: 20050502
  Receipt Date: 20250627
  Transmission Date: 20250716
  Serious: Yes (Life-Threatening, Hospitalization, Disabling, Other)
  Sender: MERCK SHARP & DOHME LLC
  Company Number: None

PATIENT
  Sex: Female
  Weight: 63.492 kg

DRUGS (1)
  1. VIOXX [Suspect]
     Active Substance: ROFECOXIB
     Indication: Arthritis
     Route: 048
     Dates: start: 1999, end: 2004

REACTIONS (31)
  - Loss of consciousness [Not Recovered/Not Resolved]
  - Tremor [Not Recovered/Not Resolved]
  - Gait inability [Unknown]
  - Paralysis [Unknown]
  - Neuropathy peripheral [Unknown]
  - Cerebrovascular accident [Not Recovered/Not Resolved]
  - Dizziness [Not Recovered/Not Resolved]
  - Migraine [Not Recovered/Not Resolved]
  - Seizure [Not Recovered/Not Resolved]
  - Fibromyalgia [Unknown]
  - Hiccups [Unknown]
  - Ill-defined disorder [Unknown]
  - Ill-defined disorder [Not Recovered/Not Resolved]
  - Ill-defined disorder [Unknown]
  - Inflammation [Unknown]
  - Mood altered [Unknown]
  - Speech disorder [Unknown]
  - Surgery [Unknown]
  - Ulcer [Unknown]
  - Urinary tract disorder [Unknown]
  - Toxicity to various agents [Unknown]
  - Cardiac disorder [Unknown]
  - Lung disorder [Unknown]
  - Abdominal pain [Unknown]
  - Weight fluctuation [Recovering/Resolving]
  - Cough [Unknown]
  - Anxiety [Unknown]
  - Constipation [Unknown]
  - Dyspepsia [Unknown]
  - Hypertension [Unknown]
  - Vision blurred [Unknown]

NARRATIVE: CASE EVENT DATE: 19990101
